FAERS Safety Report 9548444 (Version 1)
Quarter: 2013Q3

REPORT INFORMATION
  Report Type: Spontaneous
  Country: US (occurrence: None)
  Receive Date: 20130919
  Receipt Date: 20130919
  Transmission Date: 20140515
  Serious: Yes (Hospitalization)
  Sender: FDA-Public Use
  Company Number: 2013-1314

PATIENT
  Age: 68 Year
  Sex: Male
  Weight: 68.2 kg

DRUGS (28)
  1. CARFILZOMIB [Suspect]
     Indication: PLASMA CELL MYELOMA
     Dosage: DAYS 1, 2, 8, 9, 15, 16, INTRAVENOUS ?253
     Route: 042
     Dates: start: 201203
  2. DEXAMETHASONE (DEXAMETHASONE) (DEXAMETHASONE) [Concomitant]
  3. LENALIDOMIDE (LENALIDOMIDE) (LENALIDOMIDE) [Concomitant]
  4. ACYCLOVIR (ACICLOVIR) (ACICLOVIR) [Concomitant]
  5. ASPIRIN (ACETYLSALICYLIC ACID) (ACETYLSALICYLIC ACID) [Concomitant]
  6. DAPSONE (DAPSONE) (DAPSONE) [Concomitant]
  7. CLOTRIMAZOLE (CLOTRIMAZOLE) (CLOTRIMAZOLE) [Concomitant]
  8. PANTOPROZOLE SODIUM(PANTOPRAZOLE SODIUM SESQUIHYDRATE) (PANTOPRAZOLE SODIUM SESQUIHYDRATE) [Concomitant]
  9. METOPROLOL SUCCINATE(METOPROLOL SUCCINATE)(METOPROLC SUCCINATE) [Concomitant]
  10. DIGOXIN(DIGOXIN)(DIGOXIN) [Concomitant]
  11. FOLIC ACID(FOLIC ACID)(FOLIC ACID) [Concomitant]
  12. FOLIC ACID(FOLIC ACID)(FOLIC ACID) [Concomitant]
  13. MULTI-DAY TABS(VITAMINS NOS)(VITAMINS NOS) [Concomitant]
  14. VITAMIN B COMPLEX(VITAMIN B COMPLEX)(VITAMIN B COMPLEX) [Concomitant]
  15. FISH OIL(OMEGA-3 FATTY ACIDS) (OMEGA-3 FATTY ACIDS) [Concomitant]
  16. DOVONEX(CALCIPOTRIOL)(CALCIPOTRIOL) [Concomitant]
  17. SASH KIT(HEPARIN SODIUM)(HEPARIN SODIUM) [Concomitant]
  18. PRAVASTATIN SODIUM(PRAVASTATIN SODIUM)(PRAVASTATIN SODIUM) [Concomitant]
  19. NORTRIPTYLINE HCL(NORTRIPTYLINE HYDROCHLORIDE)(NORTRIPTYLINE HYDROCHLORIDE) [Concomitant]
  20. CLOBETASOL PROPIONATE(CLOBETASOL PROPIONATE)(CLOBETASOL PROPIONATE) [Concomitant]
  21. TERAZOSIN HC1(TERAZOSIN HYDROCHLORIDE)(TERAZOSIN HYDROCHLORIDE) [Concomitant]
  22. CYANOCOBALAMIN(CYANOCOBALAMIN)(CYANOCOBALAMIN) [Concomitant]
  23. PROCRIT(EPOETIN ALFA)(EPOETIN ALFA) [Concomitant]
  24. MAGNESIUM OXIDE(MAGNESIUM OXIDE)(MAGNESIUM OXIDE) [Concomitant]
  25. NEUPOGEN(FILGRASTIM)(FILGRASTIM) [Concomitant]
  26. VANCOMYCIN(VANCOMYCIN)(VANCOMYCIN) [Concomitant]
  27. CEFEPIME(CEFEPIME)(CEFEPIME) [Concomitant]
  28. REVLIMID(LENALIDOMIDE)(LENALIDOMIDE) [Concomitant]

REACTIONS (17)
  - Plasma cell myeloma [None]
  - Pancytopenia [None]
  - Renal impairment [None]
  - Pantoea agglomerans test positive [None]
  - Pyrexia [None]
  - Blood pressure decreased [None]
  - Blood albumin decreased [None]
  - Aspartate aminotransferase increased [None]
  - Faeces discoloured [None]
  - Diarrhoea [None]
  - Abdominal pain [None]
  - Sepsis [None]
  - Influenza [None]
  - Prothrombin time prolonged [None]
  - Atrial fibrillation [None]
  - Blood potassium decreased [None]
  - Dehydration [None]
